FAERS Safety Report 5067856-3 (Version None)
Quarter: 2006Q3

REPORT INFORMATION
  Report Type: 
  Country: None (occurrence: None)
  Receive Date: 20060728
  Receipt Date: 20060717
  Transmission Date: 20061208
  Serious: No
  Sender: FDA-Public Use
  Company Number: DE200607003403

PATIENT
  Age: 56 Year
  Sex: Female
  Weight: 83.0083 kg

DRUGS (3)
  1. ZYPREXA [Suspect]
     Indication: SCHIZOAFFECTIVE DISORDER
     Dosage: 20 MG DAILY (1/D) ORAL
     Route: 048
     Dates: end: 20060404
  2. XIMOVAN (ZOPICLONE) [Concomitant]
  3. QUINOLUM - SLOW RELEASE (LITHIUM CARONATE) [Concomitant]

REACTIONS (2)
  - LEUKOPENIA [None]
  - THROMBOCYTOPENIA [None]
